FAERS Safety Report 6773303-3 (Version None)
Quarter: 2010Q2

REPORT INFORMATION
  Report Type: 
  Country: None (occurrence: None)
  Receive Date: 20100616
  Receipt Date: 20100402
  Transmission Date: 20101027
  Serious: No
  Sender: FDA-Public Use
  Company Number: US-ABBOTT-10P-163-0637054-00

PATIENT
  Sex: Male
  Weight: 98.972 kg

DRUGS (18)
  1. TRILIPIX [Suspect]
     Indication: BLOOD TRIGLYCERIDES INCREASED
     Route: 048
     Dates: start: 20100122, end: 20100126
  2. IMDUR [Suspect]
     Indication: CORONARY ARTERY DISEASE
     Route: 048
     Dates: end: 20100402
  3. IMDUR [Suspect]
     Route: 048
     Dates: start: 20100403
  4. UNKNOWN STATIN [Concomitant]
     Indication: DRUG USE FOR UNKNOWN INDICATION
  5. NITROSTAT [Concomitant]
     Indication: CORONARY ARTERY DISEASE
     Dosage: 1/150
     Route: 060
  6. ASPIRIN [Concomitant]
     Indication: CORONARY ARTERY DISEASE
     Route: 048
  7. TIMOLOL MALEATE [Concomitant]
     Indication: CORONARY ARTERY DISEASE
  8. ZANTAC [Concomitant]
     Indication: DRUG USE FOR UNKNOWN INDICATION
     Route: 048
  9. LOPRESSOR [Concomitant]
     Indication: CORONARY ARTERY DISEASE
  10. PLAVIX [Concomitant]
     Indication: CORONARY ARTERY DISEASE
     Route: 048
  11. PERCOCET [Concomitant]
     Indication: PAIN
     Dosage: 5/25MG
  12. PRILOSEC [Concomitant]
     Indication: DRUG USE FOR UNKNOWN INDICATION
     Route: 048
  13. AMARYL [Concomitant]
     Indication: DIABETES MELLITUS
     Route: 048
  14. GLUCOPHAGE [Concomitant]
     Indication: DIABETES MELLITUS
     Dosage: AT BEDTIME
     Route: 048
  15. ACTOS [Concomitant]
     Indication: DIABETES MELLITUS
     Route: 048
  16. JANUVIA [Concomitant]
     Indication: DIABETES MELLITUS
     Route: 048
  17. LISINOPRIL [Concomitant]
     Indication: CORONARY ARTERY DISEASE
     Route: 048
  18. LIPITOR [Concomitant]
     Indication: HYPERLIPIDAEMIA
     Route: 048

REACTIONS (1)
  - DIZZINESS [None]
